FAERS Safety Report 23339015 (Version 1)
Quarter: 2023Q4

REPORT INFORMATION
  Report Type: Spontaneous
  Country: US (occurrence: None)
  Receive Date: 20231222
  Receipt Date: 20231222
  Transmission Date: 20240110
  Serious: Yes (Life-Threatening)
  Sender: FDA-Public Use
  Company Number: None

PATIENT
  Age: 72 Year
  Sex: Male
  Weight: 70.31 kg

DRUGS (1)
  1. DUPILUMAB [Suspect]
     Active Substance: DUPILUMAB
     Indication: Dermatitis atopic
     Dosage: FREQUENCY : EVERY OTHER WEEK;?
     Route: 058
     Dates: start: 20220707, end: 20221208

REACTIONS (5)
  - Erythema [None]
  - Immediate post-injection reaction [None]
  - Skin lesion [None]
  - Cutaneous T-cell lymphoma [None]
  - Therapy cessation [None]

NARRATIVE: CASE EVENT DATE: 20221228
